FAERS Safety Report 7260758-3 (Version None)
Quarter: 2011Q1

REPORT INFORMATION
  Report Type: 
  Country: None (occurrence: None)
  Receive Date: 20110128
  Receipt Date: 20110128
  Transmission Date: 20110831
  Serious: Yes (Other)
  Sender: FDA-Public Use
  Company Number: None

PATIENT
  Age: 17 Year
  Sex: Male

DRUGS (1)
  1. ALLEGIANCE ALCOHOL PREP PAD ALCOHOL PREP PAD [Suspect]

REACTIONS (3)
  - BACILLUS INFECTION [None]
  - BLOOD CULTURE POSITIVE [None]
  - PRODUCT CONTAMINATION [None]
